FAERS Safety Report 4980329-9 (Version None)
Quarter: 2006Q2

REPORT INFORMATION
  Report Type: 
  Country: None (occurrence: None)
  Receive Date: 20060421
  Receipt Date: 20060421
  Transmission Date: 20061013
  Serious: Yes (Hospitalization)
  Sender: FDA-Public Use
  Company Number: None

PATIENT
  Age: 45 Year
  Sex: Female
  Weight: 54.8852 kg

DRUGS (2)
  1. BEVACIZUMAB   15MG/KG [Suspect]
     Indication: GASTRIC CANCER
     Dosage: 859 MG  EVERY 21 DAYS  IV DRIP
     Route: 041
     Dates: start: 20060110, end: 20060222
  2. OXALIPLATIN     75MG/M2,  70MG/M2 [Suspect]
     Indication: GASTRIC CANCER
     Dosage: 115MG, 107MG  EVERY 21 DAYS   IV DRIP
     Route: 041
     Dates: start: 20060110, end: 20060222

REACTIONS (2)
  - INTESTINAL PERFORATION [None]
  - PNEUMOPERITONEUM [None]
